FAERS Safety Report 5152181-2 (Version None)
Quarter: 2006Q4

REPORT INFORMATION
  Report Type: 
  Country: None (occurrence: None)
  Receive Date: 20061116
  Receipt Date: 20061106
  Transmission Date: 20070319
  Serious: Yes (Hospitalization)
  Sender: FDA-Public Use
  Company Number: FR-GLAXOSMITHKLINE-B0446100A

PATIENT
  Age: 80 Year
  Sex: Male

DRUGS (7)
  1. DEROXAT [Suspect]
     Dosage: .5UNIT PER DAY
     Route: 048
     Dates: end: 20060531
  2. PREVISCAN [Suspect]
     Route: 048
     Dates: end: 20060531
  3. SECTRAL [Concomitant]
     Route: 065
  4. TANAKAN [Concomitant]
     Route: 065
  5. OMEPRAZOLE [Concomitant]
     Route: 048
  6. CACIT D3 [Concomitant]
     Route: 065
  7. OXYGEN THERAPY [Concomitant]
     Route: 048

REACTIONS (11)
  - BLADDER DISTENSION [None]
  - DEHYDRATION [None]
  - ELECTROCARDIOGRAM REPOLARISATION ABNORMALITY [None]
  - GENERAL PHYSICAL HEALTH DETERIORATION [None]
  - HALLUCINATION [None]
  - INFLAMMATION [None]
  - INTERNATIONAL NORMALISED RATIO INCREASED [None]
  - LEUKOCYTOSIS [None]
  - OVERDOSE [None]
  - RENAL FAILURE CHRONIC [None]
  - VOMITING [None]
